FAERS Safety Report 7504203-9 (Version None)
Quarter: 2011Q2

REPORT INFORMATION
  Report Type: 
  Country: None (occurrence: None)
  Receive Date: 20110525
  Receipt Date: 20110512
  Transmission Date: 20111010
  Serious: Yes (Hospitalization)
  Sender: FDA-Public Use
  Company Number: JP-UCBSA-020359

PATIENT
  Sex: Male

DRUGS (16)
  1. CERTOLIZUMAB PEGOL [Suspect]
     Dosage: C87041
     Route: 058
     Dates: end: 20100618
  2. CERTOLIZUMAB PEGOL [Suspect]
     Route: 058
     Dates: start: 20110408
  3. METHOTREXATE [Suspect]
     Indication: RHEUMATOID ARTHRITIS
     Route: 048
     Dates: start: 20090808, end: 20100926
  4. DIMEMORFAN PHOSPHATE [Concomitant]
     Dates: start: 20101004, end: 20101014
  5. METHOTREXATE [Suspect]
     Route: 048
     Dates: start: 20101023, end: 20101212
  6. REBAMIPIDE [Concomitant]
     Dates: start: 20100427
  7. TRANEXAMIC ACID [Concomitant]
     Dates: start: 20100930, end: 20101003
  8. ACETAMINOPHEN [Concomitant]
     Dosage: 400 MG /ADEQUATE DOSE
     Dates: start: 20100930, end: 20101002
  9. CERTOLIZUMAB PEGOL [Suspect]
     Indication: RHEUMATOID ARTHRITIS
     Dosage: C87041
     Route: 058
     Dates: start: 20091217
  10. CERTOLIZUMAB PEGOL [Suspect]
     Route: 058
     Dates: start: 20100705, end: 20100924
  11. METHOTREXATE [Suspect]
     Route: 048
     Dates: start: 20101218, end: 20110305
  12. LOXOPROFEN SODIUM [Concomitant]
     Dates: start: 20100427, end: 20101216
  13. CERTOLIZUMAB PEGOL [Suspect]
     Route: 058
     Dates: start: 20101022, end: 20110225
  14. PREDNISOLONE [Suspect]
     Indication: RHEUMATOID ARTHRITIS
     Route: 048
     Dates: start: 20090611
  15. NON-PYRINE COLD PREPARATION [Concomitant]
     Dosage: DAILY DOSE: 3 PACK
     Dates: start: 20100930, end: 20101003
  16. LOXOPROFEN SODIUM [Concomitant]
     Dates: start: 20101217, end: 20110113

REACTIONS (2)
  - PNEUMONIA [None]
  - SYNOVIAL CYST [None]
